FAERS Safety Report 4681243-9 (Version None)
Quarter: 2005Q2

REPORT INFORMATION
  Report Type: 
  Country: None (occurrence: None)
  Receive Date: 20050603
  Receipt Date: 20050523
  Transmission Date: 20051028
  Serious: Yes (Disabling)
  Sender: FDA-Public Use
  Company Number: GB-ROCHE-405605

PATIENT
  Age: 41 Year
  Sex: Female

DRUGS (2)
  1. XENICAL [Suspect]
     Indication: OBESITY
     Route: 048
     Dates: start: 20050415, end: 20050506
  2. FERROUS SULFATE TAB [Concomitant]
     Route: 048
     Dates: start: 20040615

REACTIONS (1)
  - PSYCHOTIC DISORDER [None]
